FAERS Safety Report 6631819-4 (Version None)
Quarter: 2010Q1

REPORT INFORMATION
  Report Type: 
  Country: None (occurrence: None)
  Receive Date: 20100312
  Receipt Date: 20100311
  Transmission Date: 20100710
  Serious: Yes (Death, Life-Threatening, Hospitalization)
  Sender: FDA-Public Use
  Company Number: BR-ROCHE-605770

PATIENT
  Sex: Male
  Weight: 67 kg

DRUGS (12)
  1. BEVACIZUMAB [Suspect]
     Indication: GASTRIC CANCER
     Dosage: FREQUENCY REPORTED AS D1Q3W.
     Route: 042
     Dates: start: 20080715, end: 20081229
  2. BEVACIZUMAB [Suspect]
     Dosage: LAST DOSE PRIOR TO SAE: 23 JUNE 2009.  DRUG WAS TEMPORARILY INTERRUPTED ON 14 JULY 2009.
     Route: 042
     Dates: start: 20090120, end: 20090714
  3. BEVACIZUMAB [Suspect]
     Dosage: DOSE FORM: INFUSION.
     Route: 042
     Dates: end: 20090720
  4. CAPECITABINE [Suspect]
     Indication: GASTRIC CANCER
     Dosage: GIVEN TWICE DAILY ON DAYS 1-14 OF 3 WEEKS CYCLE.
     Route: 048
     Dates: start: 20080715, end: 20081229
  5. CAPECITABINE [Suspect]
     Dosage: LAST DOSE PRIOR TO SAE: 14 JUL 2009. GIVEN TWICE DAILY ON DAYS 1-14 OF 3 WEEKS CYCLE.
     Route: 048
     Dates: start: 20090120, end: 20090714
  6. CAPECITABINE [Suspect]
     Route: 048
     Dates: end: 20090720
  7. WARFARIN [Suspect]
     Indication: DRUG USE FOR UNKNOWN INDICATION
     Route: 065
     Dates: start: 20081229, end: 20090709
  8. LORAZEPAM [Concomitant]
     Dates: start: 20081009
  9. LORAZEPAM [Concomitant]
     Dates: start: 20081119, end: 20090719
  10. DIPYRONE [Concomitant]
     Dosage: DRUG NAME: DIPIRONE, TOTAL DAILY DOSE (TDD): 4 AMPOLAS
     Dates: start: 20090401, end: 20090722
  11. DIMETHICONE [Concomitant]
     Dosage: DRUG NAME: DIMETICONE.
     Dates: start: 20090623
  12. CODEINE SULFATE [Concomitant]
     Dates: start: 20090623

REACTIONS (4)
  - ABDOMINAL PAIN [None]
  - COAGULOPATHY [None]
  - PULMONARY EMBOLISM [None]
  - RENAL FAILURE [None]
